FAERS Safety Report 7903510-5 (Version None)
Quarter: 2011Q4

REPORT INFORMATION
  Report Type: 
  Country: None (occurrence: None)
  Receive Date: 20111109
  Receipt Date: 20111101
  Transmission Date: 20120403
  Serious: Yes (Hospitalization)
  Sender: FDA-Public Use
  Company Number: GB-SANOFI-AVENTIS-2011SA073160

PATIENT
  Age: 60 Year
  Sex: Female
  Weight: 86.2 kg

DRUGS (2)
  1. DOCETAXEL [Suspect]
     Route: 042
     Dates: start: 20110809
  2. TRASTUZUMAB [Suspect]
     Route: 042
     Dates: start: 20110809

REACTIONS (1)
  - HYPOKALAEMIA [None]
